FAERS Safety Report 15113189 (Version 1)
Quarter: 2018Q3

REPORT INFORMATION
  Report Type: Spontaneous
  Country: US (occurrence: US)
  Receive Date: 20180706
  Receipt Date: 20180706
  Transmission Date: 20181010
  Serious: Yes (Other)
  Sender: FDA-Public Use
  Company Number: US-ROCHE-2148996

PATIENT
  Sex: Male

DRUGS (1)
  1. OCREVUS [Suspect]
     Active Substance: OCRELIZUMAB
     Indication: PRIMARY PROGRESSIVE MULTIPLE SCLEROSIS
     Dosage: SUBSEQUENT DOSE 22/DEC/2017 AND THEN 13/JUN/2018
     Route: 065
     Dates: start: 20171208

REACTIONS (2)
  - Gait disturbance [Recovering/Resolving]
  - Primary progressive multiple sclerosis [Recovering/Resolving]
